FAERS Safety Report 7210510-X (Version None)
Quarter: 2010Q4

REPORT INFORMATION
  Report Type: 
  Country: None (occurrence: None)
  Receive Date: 20101227
  Receipt Date: 20101214
  Transmission Date: 20110411
  Serious: Yes (Hospitalization)
  Sender: FDA-Public Use
  Company Number: 783050

PATIENT
  Age: 12 Year
  Sex: Male

DRUGS (12)
  1. CYTARABINE [Suspect]
     Indication: BURKITT'S LYMPHOMA
  2. CYCLOPHOSPHAMIDE [Suspect]
     Indication: BURKITT'S LYMPHOMA
     Dosage: INTRAVENOUS (NOT OTHERWISE SPECIFIED)
     Route: 042
  3. PREDNISOLONE [Suspect]
     Indication: BURKITT'S LYMPHOMA
  4. IFOSFAMIDE [Suspect]
     Indication: BURKITT'S LYMPHOMA
  5. ETOPOSIDE [Suspect]
     Indication: BURKITT'S LYMPHOMA
  6. CEFEPIME [Suspect]
     Indication: FEBRILE NEUTROPENIA
     Dosage: INTRAVENOUS (NOT OTHERWISE SPECIIFED)
     Route: 042
  7. AMIKACIN [Suspect]
     Indication: FEBRILE NEUTROPENIA
     Dosage: INTRAVENOUS (NOT OTHERWISE SPECIFIED)
     Route: 042
  8. (I.V SOLUTIONS) [Concomitant]
  9. ALLOPURINOL [Concomitant]
  10. CAPTOPRIL [Concomitant]
  11. (FUROSEMIDE) [Concomitant]
  12. AMLODIPINE [Concomitant]

REACTIONS (21)
  - ANURIA [None]
  - BLOOD SODIUM DECREASED [None]
  - BLOOD URIC ACID DECREASED [None]
  - BURKITT'S LYMPHOMA [None]
  - CLONUS [None]
  - EYE MOVEMENT DISORDER [None]
  - FEBRILE NEUTROPENIA [None]
  - GRAND MAL CONVULSION [None]
  - HAEMODIALYSIS [None]
  - HAEMOGLOBIN DECREASED [None]
  - HYPERREFLEXIA [None]
  - HYPERTENSION [None]
  - HYPOMAGNESAEMIA [None]
  - MALIGNANT NEOPLASM PROGRESSION [None]
  - MULTIPLE-DRUG RESISTANCE [None]
  - PLATELET COUNT INCREASED [None]
  - PULMONARY HAEMORRHAGE [None]
  - RENAL FAILURE ACUTE [None]
  - REVERSIBLE POSTERIOR LEUKOENCEPHALOPATHY SYNDROME [None]
  - SEPSIS [None]
  - TUMOUR LYSIS SYNDROME [None]
